FAERS Safety Report 8169512-1 (Version None)
Quarter: 2012Q1

REPORT INFORMATION
  Report Type: 
  Country: None (occurrence: None)
  Receive Date: 20120104
  Receipt Date: 20111201
  Transmission Date: 20120608
  Serious: No
  Sender: FDA-Public Use
  Company Number: 2011HGS-002895

PATIENT
  Age: 60 Year
  Sex: Female
  Weight: 82.5547 kg

DRUGS (15)
  1. AMITRIPTYLINE (AMITRIPTYLINE) (AMITRIPTYLINE) [Concomitant]
  2. PLAQUENIL (HYDROXYCHLOROQUINE SULFATE) (HYDROXYCHLOROQUINE SULFATE) [Concomitant]
  3. NEXIUM [Concomitant]
  4. PLAVIX [Concomitant]
  5. MULTIVITAMIN (MULTIVITAMINS) (ERGOCALCIFEROL, ASCORBIC ACID, FOLIC ACI [Concomitant]
  6. BENLYSTA [Suspect]
     Indication: SYSTEMIC LUPUS ERYTHEMATOSUS
     Dosage: 10 MG/KG, 1 IN 28 D, INTRAVENOUS DRIP
     Route: 041
     Dates: start: 20110615
  7. LIPITOR [Concomitant]
  8. SINGULAIR (MONTELUKAST) (MONTELUKAST) [Concomitant]
  9. CELLCEPT (MYOCPHEN MOFETIL) (MYCOPHENOLATE MOFETIL) [Concomitant]
  10. LISINOPRIL [Concomitant]
  11. EVOXAC [Concomitant]
  12. NEURONTIN [Concomitant]
  13. SINEMET (SINEMET) (LVODOPA, CARBIDOPA) [Concomitant]
  14. EFFEXOR XR (VENLAFAXINE HYDROCHLORIDE) (VENLAFAXINE HYDROCHLORIDE) [Concomitant]
  15. VITAMIN D (ERGOCALCIFEROL) (ERGOCALCIFEROL) [Concomitant]

REACTIONS (1)
  - RESPIRATORY TRACT CONGESTION [None]
